FAERS Safety Report 9325423 (Version 1)
Quarter: 2013Q2

REPORT INFORMATION
  Report Type: Spontaneous
  Country: US (occurrence: None)
  Receive Date: 20130531
  Receipt Date: 20130531
  Transmission Date: 20140414
  Serious: Yes (Hospitalization)
  Sender: FDA-Public Use
  Company Number: None

PATIENT
  Age: 68 Year
  Sex: Male

DRUGS (2)
  1. ENTACAPONE [Suspect]
     Indication: PARKINSON^S DISEASE
     Route: 048
     Dates: start: 20130219, end: 20130304
  2. TAMSULOSIN [Suspect]
     Indication: POLLAKIURIA
     Route: 048
     Dates: start: 20120816

REACTIONS (5)
  - Dizziness [None]
  - Syncope [None]
  - Dyspnoea [None]
  - Fall [None]
  - Syncope [None]
